FAERS Safety Report 6064527-1 (Version None)
Quarter: 2009Q1

REPORT INFORMATION
  Report Type: 
  Country: None (occurrence: None)
  Receive Date: 20090204
  Receipt Date: 20090128
  Transmission Date: 20090719
  Serious: Yes (Hospitalization)
  Sender: FDA-Public Use
  Company Number: A0759866A

PATIENT
  Age: 70 Year
  Sex: Male
  Weight: 99 kg

DRUGS (3)
  1. ROSIGLITAZONE [Suspect]
     Route: 048
     Dates: start: 20080524
  2. CLOZAPINE [Suspect]
     Indication: DELIRIUM
     Dosage: 18.75MG TWICE PER DAY
     Route: 048
     Dates: start: 20081201
  3. RIVASTIGMINE [Concomitant]
     Dosage: 12MG PER DAY
     Route: 048
     Dates: start: 20070227

REACTIONS (2)
  - CIRCULATORY COLLAPSE [None]
  - DELIRIUM [None]
